FAERS Safety Report 25922477 (Version 1)
Quarter: 2025Q4

REPORT INFORMATION
  Report Type: Spontaneous
  Country: US (occurrence: US)
  Receive Date: 20251015
  Receipt Date: 20251015
  Transmission Date: 20260118
  Serious: No
  Sender: SANOFI AVENTIS
  Company Number: US-SANOFI-02686785

PATIENT
  Sex: Male

DRUGS (1)
  1. DUPIXENT [Suspect]
     Active Substance: DUPILUMAB
     Indication: Asthma
     Dosage: UNK
     Route: 065

REACTIONS (13)
  - Asthenia [Unknown]
  - Fatigue [Unknown]
  - Decreased appetite [Unknown]
  - Migraine [Unknown]
  - Coordination abnormal [Unknown]
  - Brain fog [Unknown]
  - Tremor [Unknown]
  - Muscle twitching [Unknown]
  - Nausea [Unknown]
  - Pain [Unknown]
  - Mood altered [Unknown]
  - Asthma [Unknown]
  - Insomnia [Unknown]
